FAERS Safety Report 7723081-6 (Version None)
Quarter: 2011Q3

REPORT INFORMATION
  Report Type: 
  Country: None (occurrence: None)
  Receive Date: 20110901
  Receipt Date: 20110825
  Transmission Date: 20111222
  Serious: Yes (Hospitalization)
  Sender: FDA-Public Use
  Company Number: FR-CEPHALON-2011004538

PATIENT
  Sex: Female
  Weight: 76 kg

DRUGS (6)
  1. VELCADE [Suspect]
     Indication: MULTIPLE MYELOMA
     Route: 042
     Dates: start: 20110601, end: 20110720
  2. DEXAMETHASONE [Suspect]
     Indication: MULTIPLE MYELOMA
     Route: 048
     Dates: start: 20110601, end: 20110720
  3. TREANDA [Suspect]
     Indication: MULTIPLE MYELOMA
     Route: 042
     Dates: start: 20110601, end: 20110720
  4. DEXAMETHASONE [Suspect]
     Route: 048
     Dates: start: 20110825
  5. TREANDA [Suspect]
     Route: 042
     Dates: start: 20110825
  6. VELCADE [Suspect]
     Route: 042
     Dates: start: 20110825

REACTIONS (2)
  - CLOSTRIDIUM DIFFICILE COLITIS [None]
  - LUNG DISORDER [None]
